FAERS Safety Report 4786145-5 (Version None)
Quarter: 2005Q3

REPORT INFORMATION
  Report Type: 
  Country: None (occurrence: None)
  Receive Date: 20050929
  Receipt Date: 20050921
  Transmission Date: 20060218
  Serious: Yes (Hospitalization)
  Sender: FDA-Public Use
  Company Number: 8012036

PATIENT
  Sex: Male

DRUGS (1)
  1. KEPPRA [Suspect]
     Indication: CONVULSION

REACTIONS (4)
  - AGGRESSION [None]
  - ANTISOCIAL BEHAVIOUR [None]
  - DISINHIBITION [None]
  - VERBAL ABUSE [None]
